FAERS Safety Report 12146497 (Version 3)
Quarter: 2016Q3

REPORT INFORMATION
  Report Type: Spontaneous
  Country: FR (occurrence: FR)
  Receive Date: 20160304
  Receipt Date: 20160810
  Transmission Date: 20161109
  Serious: Yes (Other)
  Sender: FDA-Public Use
  Company Number: FR-BRISTOL-MYERS SQUIBB COMPANY-BMS-2016-015256

PATIENT
  Age: 30 Year
  Sex: Female

DRUGS (5)
  1. ABILIFY [Suspect]
     Active Substance: ARIPIPRAZOLE
     Dosage: 10 MG, QD
     Route: 048
     Dates: start: 201503, end: 201508
  2. ABILIFY [Suspect]
     Active Substance: ARIPIPRAZOLE
     Indication: SCHIZOPHRENIA
     Dosage: 15 MG, QD
     Route: 048
     Dates: start: 201403, end: 201503
  3. ABILIFY [Suspect]
     Active Substance: ARIPIPRAZOLE
     Dosage: 5 MG, QD
     Route: 048
     Dates: start: 201508, end: 201601
  4. VENTOLINE                          /00139501/ [Concomitant]
     Active Substance: ALBUTEROL
     Indication: PRODUCT USED FOR UNKNOWN INDICATION
     Dosage: UNK
     Route: 065
  5. ABILIFY [Suspect]
     Active Substance: ARIPIPRAZOLE
     Dosage: 2.5, QD
     Route: 048
     Dates: start: 201601

REACTIONS (9)
  - Brain neoplasm [Recovering/Resolving]
  - Oedema peripheral [Not Recovered/Not Resolved]
  - Off label use [Unknown]
  - Diplopia [Recovering/Resolving]
  - Visual acuity reduced [Recovering/Resolving]
  - Sensorimotor disorder [Recovering/Resolving]
  - Xerophthalmia [Recovering/Resolving]
  - Eye pain [Recovering/Resolving]
  - Optic neuritis [Recovering/Resolving]

NARRATIVE: CASE EVENT DATE: 201412
